FAERS Safety Report 6721750-8 (Version None)
Quarter: 2010Q2

REPORT INFORMATION
  Report Type: 
  Country: None (occurrence: None)
  Receive Date: 20100512
  Receipt Date: 20100512
  Transmission Date: 20101027
  Serious: No
  Sender: FDA-Public Use
  Company Number: None

PATIENT
  Age: 5 Year
  Sex: Male
  Weight: 20.9 kg

DRUGS (2)
  1. BENADRYL [Suspect]
     Indication: MULTIPLE ALLERGIES
     Dosage: 25MG AND 12.5MG BID PO
     Route: 048
     Dates: start: 20100424, end: 20100425
  2. . [Concomitant]

REACTIONS (1)
  - MENTAL STATUS CHANGES [None]
